FAERS Safety Report 8993512 (Version 2)
Quarter: 2013Q1

REPORT INFORMATION
  Report Type: Spontaneous
  Country: US (occurrence: US)
  Receive Date: 20130102
  Receipt Date: 20130213
  Transmission Date: 20140127
  Serious: Yes (Hospitalization, Disabling, Other)
  Sender: FDA-Public Use
  Company Number: US-TEVA-377886USA

PATIENT
  Age: 23 Year
  Sex: Female
  Weight: 52.21 kg

DRUGS (1)
  1. CLARAVIS [Suspect]
     Indication: ACNE
     Dosage: 60 MILLIGRAM DAILY;
     Dates: start: 201210, end: 20121211

REACTIONS (4)
  - Nervous system disorder [Unknown]
  - Grand mal convulsion [Unknown]
  - Impaired driving ability [Unknown]
  - Feeling abnormal [Unknown]
